FAERS Safety Report 8280113-7 (Version None)
Quarter: 2012Q2

REPORT INFORMATION
  Report Type: 
  Country: None (occurrence: None)
  Receive Date: 20120412
  Receipt Date: 20120309
  Transmission Date: 20120825
  Serious: No
  Sender: FDA-Public Use
  Company Number: US-ASTRAZENECA-2010SE57914

PATIENT
  Age: 71 Year
  Sex: Female

DRUGS (2)
  1. NEXIUM [Suspect]
     Route: 048
  2. VIMOVO [Suspect]
     Dosage: 500 MG, DAILY
     Route: 048

REACTIONS (5)
  - TOOTH ABSCESS [None]
  - ABDOMINAL DISCOMFORT [None]
  - GASTROENTERITIS VIRAL [None]
  - BONE DENSITY DECREASED [None]
  - NAUSEA [None]
